FAERS Safety Report 8591394-4 (Version None)
Quarter: 2012Q3

REPORT INFORMATION
  Report Type: 
  Country: None (occurrence: None)
  Receive Date: 20120803
  Receipt Date: 20120803
  Transmission Date: 20120928
  Serious: Yes (Disabling)
  Sender: FDA-Public Use
  Company Number: None

PATIENT
  Age: 61 Year
  Sex: Female
  Weight: 44.9061 kg

DRUGS (1)
  1. RECLAST [Suspect]
     Indication: OSTEOPOROSIS
     Dosage: 5MG ONE TIME DOSE IV DRIP
     Route: 041
     Dates: start: 20120128, end: 20120228

REACTIONS (10)
  - PYREXIA [None]
  - HYPOAESTHESIA ORAL [None]
  - ASTHENIA [None]
  - NAUSEA [None]
  - MALAISE [None]
  - VOMITING [None]
  - BALANCE DISORDER [None]
  - HEART RATE INCREASED [None]
  - DIZZINESS [None]
  - CHILLS [None]
